FAERS Safety Report 7262102-4 (Version None)
Quarter: 2011Q1

REPORT INFORMATION
  Report Type: 
  Country: None (occurrence: None)
  Receive Date: 20110130
  Receipt Date: 20101202
  Transmission Date: 20110831
  Serious: No
  Sender: FDA-Public Use
  Company Number: US-ABBOTT-10P-163-0689089-00

PATIENT
  Sex: Female
  Weight: 90.346 kg

DRUGS (3)
  1. HUMIRA [Suspect]
     Dosage: HUMIRA PEN
     Dates: start: 20101129
  2. HUMIRA [Suspect]
     Indication: RHEUMATOID ARTHRITIS
     Dosage: LOT NUMBER REFERS TO HUMIRA PEN
     Dates: start: 20101129
  3. HUMIRA [Suspect]
     Dates: start: 20040101, end: 20101129

REACTIONS (5)
  - INJECTION SITE PAIN [None]
  - DRUG DOSE OMISSION [None]
  - DEVICE MALFUNCTION [None]
  - WRONG TECHNIQUE IN DRUG USAGE PROCESS [None]
  - INJECTION SITE HAEMORRHAGE [None]
